FAERS Safety Report 25765764 (Version 2)
Quarter: 2025Q4

REPORT INFORMATION
  Report Type: Spontaneous
  Country: US (occurrence: US)
  Receive Date: 20250905
  Receipt Date: 20251001
  Transmission Date: 20260117
  Serious: Yes (Hospitalization, Other)
  Sender: ACCORD
  Company Number: US-Accord-502779

PATIENT
  Age: 59 Year
  Sex: Female

DRUGS (46)
  1. MONTELUKAST [Interacting]
     Active Substance: MONTELUKAST
     Indication: Product used for unknown indication
     Dosage: AT BEDTIME
     Route: 048
  2. FLUTICASONE FUROATE\VILANTEROL TRIFENATATE [Interacting]
     Active Substance: FLUTICASONE FUROATE\VILANTEROL TRIFENATATE
     Indication: Product used for unknown indication
     Dosage: FLUTICASONE FUROATE-VILANTEROL INHALER, 1 PUFF BY MOUTH DAILY
     Route: 048
  3. ALBUTEROL [Concomitant]
     Active Substance: ALBUTEROL
     Dosage: 2.5 MG/3 ML (0.083%) NEBULIZER SOLUTION, EVERY 4 HOURS AS NEEDED
  4. ALTEPLASE [Concomitant]
     Active Substance: ALTEPLASE
     Indication: Device occlusion
     Dosage: ALTEPLASE 2 MG INJECTION, AS NEEDED
  5. ASPIRIN [Concomitant]
     Active Substance: ASPIRIN
     Dosage: ASPIRIN 80 MG, 1 TABLET BY MOUTH DAILY (PATIENT TAKING DIFFERENTLY: 325 MG DAILY).
     Route: 048
  6. ATENOLOL [Concomitant]
     Active Substance: ATENOLOL
     Dosage: ATENOLOL 25 MG, 1 TABLET BY MOUTH DAILY
     Route: 048
  7. BACLOFEN [Concomitant]
     Active Substance: BACLOFEN
     Dosage: BACLOFEN 20 MG, 1 TABLET BY MOUTH 3 TIMES DAILY
     Route: 048
  8. BUPROPION [Concomitant]
     Active Substance: BUPROPION
     Indication: Major depression
     Dosage: BUPROPION 300 MG, 1 TABLET BY MOUTH DAILY
     Route: 048
  9. CALCIUM GLUCONATE [Concomitant]
     Active Substance: CALCIUM GLUCONATE
     Dosage: FLUID
     Route: 042
  10. CHOLECALCIFEROL [Concomitant]
     Active Substance: CHOLECALCIFEROL
     Dosage: CHOLECALCIFEROL 125 MCG (5000 UNIT), 1 CAPSULE BY MOUTH DAILY
     Route: 048
  11. DEXTROSE [Concomitant]
     Active Substance: DEXTROSE MONOHYDRATE
     Dosage: DEXTROSE 50% 25 ML INJECTION AS NEEDED
  12. DOXEPIN [Concomitant]
     Active Substance: DOXEPIN
     Dosage: DOXEPIN 10 MG, 2 TO 3 CAPSULES BY MOUTH AT BEDTIME
     Route: 048
  13. DULOXETINE [Concomitant]
     Active Substance: DULOXETINE
     Dosage: DULOXETINE 60 MG DELAYED RELEASE CAPSULE, 1 CAPSULE BY MOUTH DAILY
     Route: 048
  14. ERGOCALCIFEROL [Concomitant]
     Active Substance: ERGOCALCIFEROL
     Dosage: 50,000 UNIT, 1 CAPSULE BY MOUTH EVERY 7 DAYS.
     Route: 048
  15. GLUCAGON [Concomitant]
     Active Substance: GLUCAGON
     Dosage: GLUCAGON 1 MG INJECTION AS NEEDED
  16. DEXTROSE [Concomitant]
     Active Substance: DEXTROSE MONOHYDRATE
     Dosage: CHEW TAB
  17. HEPARIN [Concomitant]
     Active Substance: HEPARIN SODIUM
     Dosage: HEPARIN 5000 UNITS, SUBCUTANEOUS INJECTION EVERY 6 HOURS
     Route: 058
  18. INSULIN LISPRO [Concomitant]
     Active Substance: INSULIN LISPRO
     Dosage: INSULIN LISPRO INJECTION 1 TO 6 UNITS, BEFORE EVERY MEAL AND AT BEDTIME.
  19. ALBUTEROL\IPRATROPIUM [Concomitant]
     Active Substance: ALBUTEROL\IPRATROPIUM
     Dosage: IPRATROPIUM-ALBUTEROL 0.5 TO 3 MG (2.5 MG BASE)/3 ML NEBULIZER SOLUTION
  20. MAGNESIUM OXIDE [Concomitant]
     Active Substance: MAGNESIUM OXIDE
     Dosage: MAGNESIUM OXIDE 400 TO 800 MG, 1 TABLET BY MOUTH AS NEEDED
  21. MAGNESIUM SULFATE [Concomitant]
     Active Substance: MAGNESIUM SULFATE
     Dosage: FLUID
     Route: 042
  22. MELATONIN [Concomitant]
     Active Substance: MELATONIN
     Dosage: MELATONIN 3 MG TABLET, NIGHTLY BY MOUTH AS NEEDED
     Route: 048
  23. MORPHINE [Concomitant]
     Active Substance: MORPHINE
     Dosage: MORPHINE 0.5 MG INJECTION, EVERY 4 HOURS AS NEEDED
  24. NICOTINE [Concomitant]
     Active Substance: NICOTINE
     Dosage: NICOTINE 7 MG/24-HOUR TRANSDERMAL PATCH, 1 PATCH EVERY 24 HOURS
     Route: 062
  25. ACETAMINOPHEN\OXYCODONE HYDROCHLORIDE [Concomitant]
     Active Substance: ACETAMINOPHEN\OXYCODONE HYDROCHLORIDE
     Dosage: OXYCODONE-ACETAMINOPHEN 5 TO 325 MG, 1 TABLET BY MOUTH EVERY 6 HOURS AS NEEDED
     Route: 048
  26. POTASSIUM CHLORIDE [Concomitant]
     Active Substance: POTASSIUM CHLORIDE
     Dosage: POTASSIUM CHLORIDE 20 TO 60 MEQ PACKET AS NEEDED
  27. POTASSIUM PHOSPHATES [Concomitant]
     Active Substance: POTASSIUM PHOSPHATE, DIBASIC\POTASSIUM PHOSPHATE, MONOBASIC
     Dosage: POTASSIUM PHOSPHATE 250 MG TABLET AS NEEDED
  28. PRAVASTATIN [Concomitant]
     Active Substance: PRAVASTATIN
     Dosage: EVERY NIGHT AT BEDTIME
     Route: 048
  29. SODIUM PHOSPHATE [Concomitant]
     Active Substance: SODIUM PHOSPHATE
     Dosage: FLUIDS
     Route: 042
  30. TIOTROPIUM BROMIDE [Concomitant]
     Active Substance: TIOTROPIUM BROMIDE
     Dosage: TIOTROPIUM BROMIDE 5 MCG INHALER DAILY
  31. ACETAMINOPHEN\OXYCODONE HYDROCHLORIDE [Concomitant]
     Active Substance: ACETAMINOPHEN\OXYCODONE HYDROCHLORIDE
     Dosage: OXYCODONE-ACETAMINOPHEN 5 TO 325 MG, 1 TABLET BY MOUTH EVERY 6 HOURS AS NEEDED
     Route: 048
  32. PHOSPHORUS;POTASSIUM;SODIUM [Concomitant]
     Dosage: POTASSIUM-SODIUM-PHOSPHORUS 280-160-250 MG POWDER PACKET AS NEEDED
  33. ACETAZOLAMIDE [Concomitant]
     Active Substance: ACETAZOLAMIDE
     Dosage: ACETAZOLAMIDE 500 MG, 1 CAPSULE BY MOUTH TWICE DAILY
     Route: 048
  34. CEFAZOLIN [Concomitant]
     Active Substance: CEFAZOLIN
     Indication: Extradural abscess
  35. HYDROMORPHONE [Concomitant]
     Active Substance: HYDROMORPHONE
     Indication: Pain
     Dosage: AS NEEDED
     Route: 042
  36. ACETAMINOPHEN\OXYCODONE HYDROCHLORIDE [Concomitant]
     Active Substance: ACETAMINOPHEN\OXYCODONE HYDROCHLORIDE
     Dosage: OXYCODONE-ACETAMINOPHEN 5 TO 325 MG, 1 TABLET BY MOUTH EVERY 6 HOURS AS NEEDED
     Route: 048
  37. POTASSIUM CHLORIDE [Concomitant]
     Active Substance: POTASSIUM CHLORIDE
     Dosage: POTASSIUM CHLORIDE IN INTRAVENOUS FLUIDS AS NEEDED
     Route: 042
  38. ALBUTEROL [Concomitant]
     Active Substance: ALBUTEROL
     Dosage: ACTUATION INHALER, 2 PUFFS, AS NEEDED
     Route: 048
  39. BUPROPION [Concomitant]
     Active Substance: BUPROPION
     Indication: Major depression
     Dosage: BUPROPION 150 MG, 1 TABLET BY MOUTH TWICE DAILY
     Route: 048
  40. DOXEPIN [Concomitant]
     Active Substance: DOXEPIN
     Dosage: DOXEPIN 20 MG, 1 CAPSULE BY MOUTH AT BEDTIME
     Route: 048
  41. HEPARIN [Concomitant]
     Active Substance: HEPARIN SODIUM
     Dosage: HEPARIN 25,000 UNIT/250 ML (100 UNIT/ML) CONTINUOUS INFUSION
  42. HEPARIN [Concomitant]
     Active Substance: HEPARIN SODIUM
     Dosage: HEPARIN 40 UNITS/KG CORRECTIVE BOLUS AS NEEDED
  43. HEPARIN [Concomitant]
     Active Substance: HEPARIN SODIUM
     Dosage: HEPARIN 80 UNITS/KG CORRECTIVE BOLUS AS NEEDED
  44. NICOTINE [Concomitant]
     Active Substance: NICOTINE
     Dosage: NICOTINE 21 MG/24-HOUR TRANSDERMAL PATCH, 1 PATCH EVERY 24 HOURS
     Route: 062
  45. CEFAZOLIN [Concomitant]
     Active Substance: CEFAZOLIN
     Indication: Bacteraemia
  46. ASPIRIN [Concomitant]
     Active Substance: ASPIRIN
     Dosage: ASPIRIN 80 MG, 1 TABLET BY MOUTH DAILY
     Route: 048

REACTIONS (2)
  - Encephalopathy [Recovered/Resolved]
  - Drug interaction [Unknown]
